FAERS Safety Report 5854433-7 (Version None)
Quarter: 2008Q3

REPORT INFORMATION
  Report Type: 
  Country: None (occurrence: None)
  Receive Date: 20080822
  Receipt Date: 20080814
  Transmission Date: 20090109
  Serious: Yes (Hospitalization)
  Sender: FDA-Public Use
  Company Number: GB-PFIZER INC-2008032429

PATIENT
  Sex: Male
  Weight: 93 kg

DRUGS (8)
  1. SU-011,248 [Suspect]
     Indication: RENAL CELL CARCINOMA
     Route: 048
  2. ASPIRIN [Concomitant]
     Route: 048
  3. DOXAZOSIN MESYLATE [Concomitant]
     Route: 048
  4. RAMIPRIL [Concomitant]
     Route: 048
  5. FELODIPINE [Concomitant]
     Route: 048
  6. LEVOTHYROXINE SODIUM [Concomitant]
     Route: 048
  7. CREON [Concomitant]
     Route: 048
  8. LANSOPRAZOLE [Concomitant]
     Route: 048

REACTIONS (1)
  - ANGINA UNSTABLE [None]
